FAERS Safety Report 18383388 (Version 2)
Quarter: 2020Q4

REPORT INFORMATION
  Report Type: Spontaneous
  Country: IL (occurrence: IL)
  Receive Date: 20201014
  Receipt Date: 20201113
  Transmission Date: 20210114
  Serious: Yes (Other)
  Sender: FDA-Public Use
  Company Number: NVSC2020IL270745

PATIENT
  Age: 60 Year
  Sex: Female

DRUGS (17)
  1. METHOTREXATE. [Suspect]
     Active Substance: METHOTREXATE
     Indication: PROPHYLAXIS AGAINST GRAFT VERSUS HOST DISEASE
     Dosage: 15 MG/M2, UNKNOWN (DAY 1)
     Route: 065
  2. FLUDARABINE [Suspect]
     Active Substance: FLUDARABINE PHOSPHATE
     Indication: PRODUCT USED FOR UNKNOWN INDICATION
     Dosage: 150 MG/M2, UNKNOWN
     Route: 065
  3. VORICONAZOLE. [Suspect]
     Active Substance: VORICONAZOLE
     Indication: SUPPORTIVE CARE
     Dosage: UNK UNK, UNKNOWN
     Route: 065
  4. POSACONAZOLE [Concomitant]
     Active Substance: POSACONAZOLE
     Indication: PROPHYLAXIS
     Dosage: UNK UNK, UNKNOWN
     Route: 065
  5. METHYLPREDNISOLONE. [Suspect]
     Active Substance: METHYLPREDNISOLONE
     Indication: ACUTE GRAFT VERSUS HOST DISEASE
     Dosage: 1 MG/KG, UNKNOWN
     Route: 042
  6. METHYLPREDNISOLONE. [Suspect]
     Active Substance: METHYLPREDNISOLONE
     Dosage: 2 MG/KG, UNKNOWN
     Route: 065
  7. DAPSONE. [Concomitant]
     Active Substance: DAPSONE
     Indication: PROPHYLAXIS
     Dosage: UNK UNK, UNKNOWN
     Route: 065
  8. FLUDARABINE [Suspect]
     Active Substance: FLUDARABINE PHOSPHATE
     Dosage: 150 MG/KG, UNKNOWN
     Route: 065
  9. LETERMOVIR [Concomitant]
     Active Substance: LETERMOVIR
     Indication: SUPPORTIVE CARE
     Dosage: UNK UNK, UNKNOWN
     Route: 065
  10. PENICILLIN VK [Concomitant]
     Active Substance: PENICILLIN V POTASSIUM
     Indication: PROPHYLAXIS
     Dosage: UNK UNK, UNKNOWN
     Route: 065
  11. METHOTREXATE. [Suspect]
     Active Substance: METHOTREXATE
     Dosage: 10 MG/M2
     Route: 065
  12. CYCLOSPORINE. [Suspect]
     Active Substance: CYCLOSPORINE
     Indication: PROPHYLAXIS AGAINST GRAFT VERSUS HOST DISEASE
     Dosage: UNK UNK, UNKNOWN
     Route: 065
  13. METHYLPREDNISOLONE. [Suspect]
     Active Substance: METHYLPREDNISOLONE
     Dosage: 500 MG, QD
     Route: 042
  14. SULFAMETHOXAZOLE AND TRIMETHOPRIM [Concomitant]
     Active Substance: SULFAMETHOXAZOLE\TRIMETHOPRIM
     Indication: PROPHYLAXIS
     Dosage: UNK UNK, UNKNOWN
     Route: 065
  15. ACICLOVIR [Suspect]
     Active Substance: ACYCLOVIR
     Indication: SUPPORTIVE CARE
     Dosage: UNK UNK, UNKNOWN
     Route: 065
  16. BUSULFAN. [Suspect]
     Active Substance: BUSULFAN
     Indication: PRODUCT USED FOR UNKNOWN INDICATION
     Dosage: 16 MG/KG, UNKNOWN (FOR 4 DAYS)
     Route: 048
  17. PREDNISONE. [Concomitant]
     Active Substance: PREDNISONE
     Indication: PROPHYLAXIS
     Dosage: 1 MG/KG, UNKNOWN
     Route: 048

REACTIONS (17)
  - Pruritus [Unknown]
  - Fluid retention [Unknown]
  - Steroid dependence [Unknown]
  - Mucosal inflammation [Recovering/Resolving]
  - Pain [Unknown]
  - Dermatitis bullous [Recovering/Resolving]
  - Pyrexia [Unknown]
  - Toxic epidermal necrolysis [Recovering/Resolving]
  - Chronic gastritis [Unknown]
  - Acute graft versus host disease in skin [Recovering/Resolving]
  - Acute graft versus host disease in intestine [Recovering/Resolving]
  - Decreased appetite [Unknown]
  - Oesophagitis [Unknown]
  - Skin erosion [Recovering/Resolving]
  - Rash maculo-papular [Unknown]
  - Febrile neutropenia [Unknown]
  - Nausea [Unknown]
